FAERS Safety Report 17623395 (Version 1)
Quarter: 2020Q2

REPORT INFORMATION
  Report Type: Report from Study
  Country: DE (occurrence: DE)
  Receive Date: 20200403
  Receipt Date: 20200403
  Transmission Date: 20200713
  Serious: Yes (Hospitalization)
  Sender: FDA-Public Use
  Company Number: DE-GILEAD-2020-0455341

PATIENT
  Sex: Female
  Weight: 73.5 kg

DRUGS (19)
  1. OBINUTUZUMAB. [Suspect]
     Active Substance: OBINUTUZUMAB
     Indication: CHRONIC LYMPHOCYTIC LEUKAEMIA
     Dosage: 1000 MG
     Route: 042
     Dates: start: 20181011, end: 20181012
  2. IBUPROFEN. [Concomitant]
     Active Substance: IBUPROFEN
     Indication: HEADACHE
     Route: 048
     Dates: start: 2018
  3. COTRIM FORTE [Concomitant]
     Active Substance: SULFAMETHOXAZOLE\TRIMETHOPRIM
     Indication: PROPHYLAXIS
     Route: 048
     Dates: start: 20181011
  4. OBINUTUZUMAB. [Suspect]
     Active Substance: OBINUTUZUMAB
     Dosage: 1000 MG
     Route: 042
     Dates: start: 20181212, end: 20181212
  5. IDELALISIB [Suspect]
     Active Substance: IDELALISIB
     Indication: CHRONIC LYMPHOCYTIC LEUKAEMIA
     Dosage: 100 MG, QD
     Route: 048
     Dates: start: 20181212
  6. OBINUTUZUMAB. [Suspect]
     Active Substance: OBINUTUZUMAB
     Dosage: 1000 MG
     Route: 042
     Dates: start: 20190116, end: 20190116
  7. OBINUTUZUMAB. [Suspect]
     Active Substance: OBINUTUZUMAB
     Dosage: 1000 MG
     Route: 042
     Dates: start: 20190227, end: 20190227
  8. OBINUTUZUMAB. [Suspect]
     Active Substance: OBINUTUZUMAB
     Dosage: 1000 MG, CYCLICAL
     Route: 042
     Dates: start: 20181018, end: 20181018
  9. IDELALISIB [Suspect]
     Active Substance: IDELALISIB
     Dosage: 100 MG, QD
     Route: 048
     Dates: start: 20181011, end: 20181107
  10. TIRABRUTINIB [Suspect]
     Active Substance: TIRABRUTINIB
     Dosage: 1 DOSAGE FORM, QD
     Route: 048
     Dates: start: 20181108, end: 20181211
  11. IDELALISIB [Suspect]
     Active Substance: IDELALISIB
     Dosage: 1 DOSAGE FORM, QD
     Route: 048
     Dates: start: 20181108, end: 20181211
  12. OBINUTUZUMAB. [Suspect]
     Active Substance: OBINUTUZUMAB
     Dosage: 1000 MG, CYCLICAL
     Route: 042
     Dates: start: 20190130, end: 20190130
  13. TIRABRUTINIB [Suspect]
     Active Substance: TIRABRUTINIB
     Dosage: 80 MG, QD
     Route: 048
     Dates: start: 20181011, end: 20181107
  14. TIRABRUTINIB [Suspect]
     Active Substance: TIRABRUTINIB
     Dosage: 1 DOSAGE FORM, QD
     Route: 048
     Dates: start: 20200318
  15. L-THYROXIN [LEVOTHYROXINE] [Concomitant]
     Active Substance: LEVOTHYROXINE SODIUM
     Indication: HYPOTHYROIDISM
     Route: 048
     Dates: start: 2017
  16. TIRABRUTINIB [Suspect]
     Active Substance: TIRABRUTINIB
     Indication: CHRONIC LYMPHOCYTIC LEUKAEMIA
     Dosage: 80 MG, QD
     Route: 048
     Dates: start: 20181212
  17. IDELALISIB [Suspect]
     Active Substance: IDELALISIB
     Dosage: 1 DOSAGE FORM, QD
     Route: 048
     Dates: start: 20200318
  18. OBINUTUZUMAB. [Suspect]
     Active Substance: OBINUTUZUMAB
     Dosage: 1000 MG
     Route: 042
     Dates: start: 20181025, end: 20181025
  19. OBINUTUZUMAB. [Suspect]
     Active Substance: OBINUTUZUMAB
     Dosage: 1000 MG
     Route: 042
     Dates: start: 20181107, end: 20181107

REACTIONS (1)
  - Large intestine infection [Recovered/Resolved]

NARRATIVE: CASE EVENT DATE: 20200305
